FAERS Safety Report 23632596 (Version 1)
Quarter: 2024Q1

REPORT INFORMATION
  Report Type: Spontaneous
  Country: US (occurrence: US)
  Receive Date: 20240314
  Receipt Date: 20240314
  Transmission Date: 20240410
  Serious: No
  Sender: FDA-Public Use
  Company Number: US-BIOGEN-2022BI01092437

PATIENT
  Age: 66 Year
  Sex: Female

DRUGS (3)
  1. TYSABRI [Suspect]
     Active Substance: NATALIZUMAB
     Indication: Multiple sclerosis
     Route: 050
     Dates: start: 20060907
  2. TYSABRI [Suspect]
     Active Substance: NATALIZUMAB
     Route: 050
  3. TYSABRI [Suspect]
     Active Substance: NATALIZUMAB
     Dosage: BACK TO EVERY 4 WEEKS
     Route: 050

REACTIONS (3)
  - Prescribed underdose [Recovered/Resolved]
  - COVID-19 [Not Recovered/Not Resolved]
  - Colitis [Recovered/Resolved]

NARRATIVE: CASE EVENT DATE: 20210901
